FAERS Safety Report 19378919 (Version 2)
Quarter: 2021Q3

REPORT INFORMATION
  Report Type: Spontaneous
  Country: US (occurrence: US)
  Receive Date: 20210606
  Receipt Date: 20210823
  Transmission Date: 20211014
  Serious: No
  Sender: FDA-Public Use
  Company Number: US-SA-2021SA186639

PATIENT
  Age: 49 Year
  Sex: Female

DRUGS (2)
  1. DUPIXENT [Suspect]
     Active Substance: DUPILUMAB
     Indication: ASTHMA
     Dosage: 300 MG, QOW
     Route: 058
     Dates: start: 20210211, end: 2021
  2. DUPIXENT [Suspect]
     Active Substance: DUPILUMAB
     Dosage: UNK
     Route: 058
     Dates: start: 202103, end: 20210809

REACTIONS (3)
  - Headache [Unknown]
  - Product dose omission issue [Unknown]
  - Product use issue [Unknown]

NARRATIVE: CASE EVENT DATE: 20210211
